FAERS Safety Report 21684696 (Version 2)
Quarter: 2023Q1

REPORT INFORMATION
  Report Type: Spontaneous
  Country: IT (occurrence: IT)
  Receive Date: 20221205
  Receipt Date: 20230306
  Transmission Date: 20230418
  Serious: Yes (Other)
  Sender: FDA-Public Use
  Company Number: IT-BRISTOL-MYERS SQUIBB COMPANY-2022-147166

PATIENT
  Age: 34 Year
  Sex: Male
  Weight: 105 kg

DRUGS (4)
  1. NIVOLUMAB [Suspect]
     Active Substance: NIVOLUMAB
     Indication: Plasma cell myeloma
     Dosage: DOSE : IPI. 3MG/KG, NIV. 1MG/KG;     FREQ : EVERY 21 DAYS FOR 4 DOSES
     Dates: start: 20221027
  2. IPILIMUMAB [Suspect]
     Active Substance: IPILIMUMAB
     Indication: Plasma cell myeloma
     Dosage: DOSE: IPI. 3MG/KG, NIV. 1MG/KG;  FREQ: EVERY 21 DAYS FOR 4 DOSES
     Dates: start: 20221027
  3. TAFINLAR [Concomitant]
     Active Substance: DABRAFENIB MESYLATE
     Indication: Product used for unknown indication
     Dates: start: 202202
  4. MEKINIST [Concomitant]
     Active Substance: TRAMETINIB DIMETHYL SULFOXIDE
     Indication: Product used for unknown indication
     Dates: start: 202202

REACTIONS (4)
  - Diarrhoea [Unknown]
  - Epilepsy [Not Recovered/Not Resolved]
  - Drug ineffective [Unknown]
  - Off label use [Unknown]

NARRATIVE: CASE EVENT DATE: 20221031
